FAERS Safety Report 12515661 (Version 2)
Quarter: 2016Q3

REPORT INFORMATION
  Report Type: Report from Study
  Country: JP (occurrence: JP)
  Receive Date: 20160630
  Receipt Date: 20160722
  Transmission Date: 20161109
  Serious: Yes (Hospitalization, Congenital Anomaly, Other)
  Sender: FDA-Public Use
  Company Number: JP-ASTELLAS-2016JP010575AA

PATIENT
  Age: 0 Day
  Sex: Female
  Weight: 2 kg

DRUGS (7)
  1. PREDNISOLONE. [Suspect]
     Active Substance: PREDNISOLONE
     Indication: FOETAL EXPOSURE DURING PREGNANCY
     Route: 064
     Dates: start: 2015, end: 20150820
  2. PREDNISOLONE. [Suspect]
     Active Substance: PREDNISOLONE
     Route: 064
     Dates: start: 20150911, end: 20160220
  3. PREDNISOLONE. [Suspect]
     Active Substance: PREDNISOLONE
     Route: 063
     Dates: start: 20160220, end: 201603
  4. CIMZIA [Suspect]
     Active Substance: CERTOLIZUMAB PEGOL
     Route: 064
     Dates: start: 20151016, end: 20160207
  5. PREDNISOLONE. [Suspect]
     Active Substance: PREDNISOLONE
     Indication: EXPOSURE DURING BREAST FEEDING
     Route: 064
     Dates: start: 20150821, end: 20150910
  6. CIMZIA [Suspect]
     Active Substance: CERTOLIZUMAB PEGOL
     Indication: FOETAL EXPOSURE DURING PREGNANCY
     Route: 064
     Dates: start: 2015, end: 20150717
  7. TACROLIMUS. [Suspect]
     Active Substance: TACROLIMUS
     Indication: FOETAL EXPOSURE DURING PREGNANCY
     Route: 064
     Dates: start: 2015, end: 20150821

REACTIONS (2)
  - Low birth weight baby [Recovered/Resolved]
  - Umbilical cord around neck [Recovered/Resolved]

NARRATIVE: CASE EVENT DATE: 20160220
